FAERS Safety Report 4984433-0 (Version None)
Quarter: 2006Q2

REPORT INFORMATION
  Report Type: 
  Country: None (occurrence: None)
  Receive Date: 20060427
  Receipt Date: 20060425
  Transmission Date: 20061013
  Serious: Yes (Hospitalization, Other)
  Sender: FDA-Public Use
  Company Number: US-GLAXOSMITHKLINE-A0603239A

PATIENT
  Age: 82 Year
  Sex: Male

DRUGS (2)
  1. ADVAIR DISKUS 100/50 [Suspect]
     Indication: DRUG USE FOR UNKNOWN INDICATION
     Route: 055
     Dates: start: 20060212, end: 20060218
  2. NO CONCURRENT MEDICATION [Concomitant]

REACTIONS (3)
  - AGEUSIA [None]
  - CANDIDIASIS [None]
  - MYOCARDIAL INFARCTION [None]
